FAERS Safety Report 5596181-7 (Version None)
Quarter: 2008Q1

REPORT INFORMATION
  Report Type: 
  Country: None (occurrence: None)
  Receive Date: 20080118
  Receipt Date: 20080110
  Transmission Date: 20080703
  Serious: Yes (Hospitalization, Other)
  Sender: FDA-Public Use
  Company Number: US-ABBOTT-08P-163-0433230-00

PATIENT
  Sex: Female
  Weight: 63.56 kg

DRUGS (2)
  1. HUMIRA [Suspect]
     Indication: RHEUMATOID ARTHRITIS
     Route: 058
     Dates: start: 20040101, end: 20060601
  2. HUMIRA [Suspect]
     Route: 058
     Dates: start: 20070101

REACTIONS (7)
  - BLISTER [None]
  - BONE EROSION [None]
  - CELLULITIS [None]
  - IMPAIRED HEALING [None]
  - LOCALISED INFECTION [None]
  - OPEN WOUND [None]
  - WOUND INFECTION [None]
